FAERS Safety Report 23431848 (Version 5)
Quarter: 2025Q1

REPORT INFORMATION
  Report Type: Report from Study
  Country: CA (occurrence: CA)
  Receive Date: 20240123
  Receipt Date: 20250128
  Transmission Date: 20250408
  Serious: Yes (Other)
  Sender: TAKEDA
  Company Number: CA-TAKEDA-2020TUS049168

PATIENT
  Sex: Male

DRUGS (3)
  1. VEDOLIZUMAB [Suspect]
     Active Substance: VEDOLIZUMAB
     Indication: Crohn^s disease
  2. VEDOLIZUMAB [Suspect]
     Active Substance: VEDOLIZUMAB
  3. IRON [Concomitant]
     Active Substance: IRON

REACTIONS (15)
  - Haematochezia [Unknown]
  - Anal haemorrhage [Recovering/Resolving]
  - Diarrhoea [Recovering/Resolving]
  - Blood iron decreased [Unknown]
  - Sleep disorder [Unknown]
  - Pain [Unknown]
  - Impaired quality of life [Not Recovered/Not Resolved]
  - Anal skin tags [Unknown]
  - Discomfort [Unknown]
  - Abdominal pain [Not Recovered/Not Resolved]
  - Chest pain [Recovered/Resolved]
  - Abdominal distension [Unknown]
  - Haemorrhoids [Unknown]
  - Constipation [Unknown]
  - Arthralgia [Not Recovered/Not Resolved]
